FAERS Safety Report 18945130 (Version 1)
Quarter: 2021Q1

REPORT INFORMATION
  Report Type: Spontaneous
  Country: US (occurrence: US)
  Receive Date: 20210226
  Receipt Date: 20210226
  Transmission Date: 20210420
  Serious: Yes (Life-Threatening, Hospitalization)
  Sender: FDA-Public Use
  Company Number: US-MYLANLABS-2021M1011222

PATIENT
  Age: 76 Year
  Sex: Male

DRUGS (1)
  1. WARFARIN [Suspect]
     Active Substance: WARFARIN
     Indication: ANTICOAGULANT THERAPY
     Dosage: UNK
     Route: 065

REACTIONS (4)
  - Small intestinal haemorrhage [Recovering/Resolving]
  - Gingival bleeding [Recovering/Resolving]
  - Intestinal ischaemia [Recovering/Resolving]
  - Anticoagulation drug level above therapeutic [Recovering/Resolving]
